FAERS Safety Report 13565908 (Version 1)
Quarter: 2017Q2

REPORT INFORMATION
  Report Type: Spontaneous
  Country: GB (occurrence: GB)
  Receive Date: 20170520
  Receipt Date: 20170520
  Transmission Date: 20170830
  Serious: Yes (Other)
  Sender: FDA-Public Use
  Company Number: GB-ACCORD-051490

PATIENT
  Age: 61 Year
  Sex: Female
  Weight: 88.9 kg

DRUGS (8)
  1. IBUPROFEN. [Concomitant]
     Active Substance: IBUPROFEN
  2. THYROXINE [Concomitant]
     Active Substance: LEVOTHYROXINE
  3. PARACETAMOL [Concomitant]
     Active Substance: ACETAMINOPHEN
  4. CHLORPHENAMINE/CHLORPHENAMINE MALEATE/CHLORPHENAMINE RESINATE/CHLORPHENAMINE TANNATE [Concomitant]
  5. BEZAFIBRATE [Concomitant]
     Active Substance: BEZAFIBRATE
  6. LETROZOLE. [Suspect]
     Active Substance: LETROZOLE
     Indication: OESTROGEN RECEPTOR POSITIVE BREAST CANCER
     Route: 048
     Dates: start: 20161001, end: 20170301
  7. ANASTROZOLE. [Suspect]
     Active Substance: ANASTROZOLE
     Indication: OESTROGEN RECEPTOR POSITIVE BREAST CANCER
     Route: 048
     Dates: start: 20170401, end: 20170419
  8. COD-LIVER OIL [Concomitant]
     Active Substance: FISH OIL

REACTIONS (3)
  - Fibromyalgia [Recovered/Resolved with Sequelae]
  - Abnormal weight gain [Recovering/Resolving]
  - Hot flush [Recovered/Resolved]
